FAERS Safety Report 25839463 (Version 1)
Quarter: 2025Q3

REPORT INFORMATION
  Report Type: Spontaneous
  Country: EU (occurrence: EU)
  Receive Date: 20250924
  Receipt Date: 20250924
  Transmission Date: 20251021
  Serious: Yes (Other)
  Sender: SAMSUNG BIOEPIS
  Company Number: None

PATIENT
  Age: 20 Year
  Sex: Female
  Weight: 55 kg

DRUGS (1)
  1. ETANERCEPT [Suspect]
     Active Substance: ETANERCEPT
     Indication: Juvenile idiopathic arthritis
     Route: 058
     Dates: start: 2017, end: 202508

REACTIONS (4)
  - Juvenile idiopathic arthritis [Unknown]
  - Synovitis [Unknown]
  - Synovitis [Unknown]
  - Synovitis [Unknown]

NARRATIVE: CASE EVENT DATE: 20250801
